FAERS Safety Report 23525604 (Version 2)
Quarter: 2024Q2

REPORT INFORMATION
  Report Type: Report from Study
  Country: IN (occurrence: IN)
  Receive Date: 20240215
  Receipt Date: 20240506
  Transmission Date: 20240716
  Serious: Yes (Hospitalization, Other)
  Sender: FDA-Public Use
  Company Number: IN-002147023-NVSC2023IN279325

PATIENT

DRUGS (3)
  1. RUXOLITINIB [Suspect]
     Active Substance: RUXOLITINIB
     Indication: Primary myelofibrosis
     Dosage: 5 MG, BID
     Route: 048
     Dates: start: 20220110
  2. RUXOLITINIB [Suspect]
     Active Substance: RUXOLITINIB
     Dosage: 20 MG, BID
     Route: 048
     Dates: start: 20230327
  3. RUXOLITINIB [Suspect]
     Active Substance: RUXOLITINIB
     Dosage: 20 MG, QD
     Route: 048

REACTIONS (12)
  - Laboratory test abnormal [Unknown]
  - Renal disorder [Unknown]
  - Fatigue [Unknown]
  - Asthenia [Unknown]
  - Hepatosplenomegaly [Unknown]
  - Bronchiectasis [Unknown]
  - Haemoglobin decreased [Unknown]
  - Pallor [Unknown]
  - Inappropriate schedule of product administration [Unknown]
  - Portal vein dilatation [Unknown]
  - Prostatomegaly [Unknown]
  - Bladder dilatation [Unknown]

NARRATIVE: CASE EVENT DATE: 20231104
